FAERS Safety Report 8332752-2 (Version None)
Quarter: 2012Q2

REPORT INFORMATION
  Report Type: 
  Country: None (occurrence: None)
  Receive Date: 20120503
  Receipt Date: 20120428
  Transmission Date: 20120825
  Serious: Yes (Life-Threatening, Hospitalization)
  Sender: FDA-Public Use
  Company Number: EG-SANOFI-AVENTIS-2012SA030065

PATIENT
  Age: 59 Year
  Sex: Female

DRUGS (1)
  1. LANTUS [Suspect]
     Indication: TYPE 2 DIABETES MELLITUS
     Dosage: DOSE: 8 TO 10 TO 20 U/DAY
     Route: 058
     Dates: start: 20111011, end: 20120228

REACTIONS (6)
  - GANGRENE [None]
  - ARTHROPATHY [None]
  - PYREXIA [None]
  - DIABETIC HYPERGLYCAEMIC COMA [None]
  - DIABETIC FOOT [None]
  - CHILLS [None]
